FAERS Safety Report 6821988-5 (Version None)
Quarter: 2010Q3

REPORT INFORMATION
  Report Type: 
  Country: None (occurrence: None)
  Receive Date: 20100707
  Receipt Date: 20100707
  Transmission Date: 20110219
  Serious: Yes (Hospitalization)
  Sender: FDA-Public Use
  Company Number: None

PATIENT
  Sex: Male
  Weight: 76 kg

DRUGS (3)
  1. OFATUMUMAB [Suspect]
     Indication: CHRONIC LYMPHOCYTIC LEUKAEMIA
     Dosage: 1000MG/Q28DAYS/IV INFUSI
     Route: 042
     Dates: start: 20100622
  2. BENDAMUSTINE [Suspect]
     Indication: CHRONIC LYMPHOCYTIC LEUKAEMIA
     Dosage: 135.8 MG /Q28DAYS/IV INFU
     Route: 042
     Dates: start: 20100622
  3. BENDAMUSTINE [Suspect]
     Indication: CHRONIC LYMPHOCYTIC LEUKAEMIA
     Dosage: 135.8 MG /Q28DAYS/IV INFU
     Route: 042
     Dates: start: 20100623

REACTIONS (5)
  - APHAGIA [None]
  - FAILURE TO THRIVE [None]
  - FATIGUE [None]
  - FLUID INTAKE REDUCED [None]
  - NAUSEA [None]
